FAERS Safety Report 9181960 (Version 2)
Quarter: 2013Q2

REPORT INFORMATION
  Report Type: Spontaneous
  Country: FR (occurrence: FR)
  Receive Date: 20130322
  Receipt Date: 20130607
  Transmission Date: 20140414
  Serious: Yes (Hospitalization, Other)
  Sender: FDA-Public Use
  Company Number: FR-PFIZER INC-2013087638

PATIENT
  Age: 3 Year
  Sex: Male
  Weight: 14.8 kg

DRUGS (1)
  1. ADVIL ENFANTS ET NOURRISSONS [Suspect]
     Indication: PYREXIA
     Dosage: WEIGHT DOSE
     Dates: start: 20121008, end: 20121010

REACTIONS (1)
  - Lung disorder [Recovered/Resolved]
